FAERS Safety Report 7703404-4 (Version None)
Quarter: 2011Q3

REPORT INFORMATION
  Report Type: 
  Country: None (occurrence: None)
  Receive Date: 20110823
  Receipt Date: 20110823
  Transmission Date: 20111222
  Serious: No
  Sender: FDA-Public Use
  Company Number: None

PATIENT
  Age: 54 Year
  Sex: Female
  Weight: 65.77 kg

DRUGS (1)
  1. OMEPRAZOLE [Suspect]
     Indication: COUGH
     Dosage: 20 MG
     Dates: start: 20101201, end: 20101230

REACTIONS (4)
  - DYSPEPSIA [None]
  - WEIGHT INCREASED [None]
  - ARTHRALGIA [None]
  - MENTAL STATUS CHANGES [None]
